FAERS Safety Report 24718447 (Version 1)
Quarter: 2024Q4

REPORT INFORMATION
  Report Type: Report from Study
  Country: US (occurrence: US)
  Receive Date: 20241210
  Receipt Date: 20241210
  Transmission Date: 20250115
  Serious: Yes (Other)
  Sender: MYLAN
  Company Number: US-MYLANLABS-2024M1110021

PATIENT

DRUGS (1)
  1. PHENTOLAMINE [Suspect]
     Active Substance: PHENTOLAMINE
     Indication: Product used for unknown indication
     Dosage: UNK
     Route: 047
     Dates: end: 202411

REACTIONS (4)
  - Punctate keratitis [Recovered/Resolved]
  - Eyelid oedema [Recovered/Resolved]
  - Noninfective conjunctivitis [Recovered/Resolved]
  - Conjunctival hyperaemia [Recovered/Resolved]

NARRATIVE: CASE EVENT DATE: 20241106
